FAERS Safety Report 4603228-0 (Version None)
Quarter: 2005Q2

REPORT INFORMATION
  Report Type: 
  Country: None (occurrence: None)
  Receive Date: 20050223
  Receipt Date: 20041105
  Transmission Date: 20051028
  Serious: Yes (Other)
  Sender: FDA-Public Use
  Company Number: PHEH2004US11767

PATIENT
  Age: 52 Year
  Sex: Male

DRUGS (2)
  1. DIOVAN [Suspect]
     Dosage: SEE IMAGE
     Route: 048
     Dates: start: 20030101
  2. ALTACE [Suspect]

REACTIONS (5)
  - ANGIONEUROTIC OEDEMA [None]
  - FACE OEDEMA [None]
  - LOCALISED OEDEMA [None]
  - OEDEMA MUCOSAL [None]
  - PHARYNGEAL OEDEMA [None]
